FAERS Safety Report 8849426 (Version 1)
Quarter: 2012Q4

REPORT INFORMATION
  Report Type: 
  Country: US (occurrence: US)
  Receive Date: 20121019
  Receipt Date: 20121019
  Transmission Date: 20130627
  Serious: Yes (Other)
  Sender: FDA-Public Use
  Company Number: US-PFIZER INC-2012259300

PATIENT

DRUGS (1)
  1. VENLAFAXINE HYDROCHLORIDE [Suspect]
     Dosage: 75 mg, 2x/day

REACTIONS (5)
  - Depression [Unknown]
  - Anger [Unknown]
  - Hostility [Unknown]
  - Anxiety [Unknown]
  - Stress [Unknown]
